FAERS Safety Report 8018729-5 (Version None)
Quarter: 2012Q1

REPORT INFORMATION
  Report Type: 
  Country: None (occurrence: None)
  Receive Date: 20120103
  Receipt Date: 20111222
  Transmission Date: 20120608
  Serious: Yes (Hospitalization, Other)
  Sender: FDA-Public Use
  Company Number: EG-US-EMD SERONO, INC.-7103438

PATIENT
  Age: 26 Year
  Sex: Female

DRUGS (3)
  1. CHORIOGONADOTROPIN ALFA [Suspect]
     Indication: IN VITRO FERTILISATION
  2. TRIPTORELIN [Suspect]
     Indication: IN VITRO FERTILISATION
     Route: 058
  3. L- TROXIN [Concomitant]
     Indication: HYPOTHYROIDISM

REACTIONS (3)
  - TWIN PREGNANCY [None]
  - OVARIAN HYPERSTIMULATION SYNDROME [None]
  - ECTOPIC PREGNANCY [None]
